FAERS Safety Report 6206959-4 (Version None)
Quarter: 2009Q2

REPORT INFORMATION
  Report Type: 
  Country: None (occurrence: None)
  Receive Date: 20090528
  Receipt Date: 20090518
  Transmission Date: 20091009
  Serious: Yes (Other)
  Sender: FDA-Public Use
  Company Number: B0574591A

PATIENT
  Age: 41 Year
  Sex: Male

DRUGS (1)
  1. AVAMYS [Suspect]
     Route: 045
     Dates: start: 20090324, end: 20090420

REACTIONS (2)
  - BLINDNESS TRANSIENT [None]
  - VISION BLURRED [None]
